FAERS Safety Report 21859584 (Version 1)
Quarter: 2023Q1

REPORT INFORMATION
  Report Type: Spontaneous
  Country: US (occurrence: US)
  Receive Date: 20230113
  Receipt Date: 20230113
  Transmission Date: 20230418
  Serious: Yes (Hospitalization, Other)
  Sender: FDA-Public Use
  Company Number: US-CIPLA LTD.-2022US06463

PATIENT
  Age: 68 Year
  Sex: Female

DRUGS (2)
  1. CYCLOPHOSPHAMIDE [Suspect]
     Active Substance: CYCLOPHOSPHAMIDE
     Indication: Invasive ductal breast carcinoma
     Dosage: UNK, (CUMULATIVE DOSE OF CYCLOPHOSPHAMIDE 4720 MG/M2)
     Route: 065
  2. DOXORUBICIN [Suspect]
     Active Substance: DOXORUBICIN
     Indication: Invasive ductal breast carcinoma
     Dosage: UNK, (CUMULATIVE DOSE OF DOXORUBICIN 472 MG/M2)
     Route: 065

REACTIONS (2)
  - Left ventricular hypertrophy [Unknown]
  - Syncope [Recovered/Resolved]
